FAERS Safety Report 5358382-2 (Version None)
Quarter: 2007Q2

REPORT INFORMATION
  Report Type: 
  Country: None (occurrence: None)
  Receive Date: 20070530
  Receipt Date: 20061004
  Transmission Date: 20071010
  Serious: Yes (Hospitalization, Other)
  Sender: FDA-Public Use
  Company Number: US200601000845

PATIENT
  Age: 40 Year
  Sex: Female
  Weight: 115.6 kg

DRUGS (7)
  1. ZYPREXA [Suspect]
     Indication: BIPOLAR DISORDER
     Dosage: SEE IMAGE
     Route: 048
     Dates: start: 19970604, end: 20030913
  2. ZYPREXA [Suspect]
     Indication: BIPOLAR DISORDER
     Dosage: SEE IMAGE
     Route: 048
     Dates: start: 20030914, end: 20030917
  3. ZYPREXA [Suspect]
     Indication: BIPOLAR DISORDER
     Dosage: SEE IMAGE
     Route: 048
     Dates: start: 20030918, end: 20040115
  4. LITHIUM CARBONATE [Concomitant]
  5. . [Concomitant]
  6. . [Concomitant]
  7. . [Concomitant]

REACTIONS (7)
  - ANGINA PECTORIS [None]
  - DIABETES MELLITUS NON-INSULIN-DEPENDENT [None]
  - DIABETIC GASTROENTEROPATHY [None]
  - HYPERLIPIDAEMIA [None]
  - HYPERTENSION [None]
  - PANCREATITIS [None]
  - WEIGHT INCREASED [None]
